FAERS Safety Report 17953642 (Version 2)
Quarter: 2020Q4

REPORT INFORMATION
  Report Type: Report from Study
  Country: None (occurrence: US)
  Receive Date: 20200628
  Receipt Date: 20201016
  Transmission Date: 20210113
  Serious: Yes (Life-Threatening, Other)
  Sender: FDA-Public Use
  Company Number: US-ABBVIE-20K-163-3455208-00

PATIENT
  Age: 16 Year
  Sex: Female
  Weight: 61.29 kg

DRUGS (3)
  1. GADOTERIC ACID MEGLUMINE [Suspect]
     Active Substance: GADOTERATE MEGLUMINE
     Indication: PRODUCT USED FOR UNKNOWN INDICATION
     Route: 065
  2. IRON [Concomitant]
     Active Substance: IRON
     Indication: SUPPLEMENTATION THERAPY
  3. HUMIRA [Suspect]
     Active Substance: ADALIMUMAB
     Indication: CROHN^S DISEASE
     Route: 058
     Dates: start: 20200424

REACTIONS (6)
  - Contrast media allergy [Recovered/Resolved]
  - Nasal congestion [Recovered/Resolved]
  - Nasal obstruction [Recovered/Resolved]
  - Eye swelling [Recovered/Resolved]
  - Rhinorrhoea [Recovered/Resolved]
  - Anaphylactic reaction [Recovered/Resolved]

NARRATIVE: CASE EVENT DATE: 20200619
